FAERS Safety Report 5654408-7 (Version None)
Quarter: 2008Q1

REPORT INFORMATION
  Report Type: 
  Country: None (occurrence: None)
  Receive Date: 20080305
  Receipt Date: 20080229
  Transmission Date: 20080703
  Serious: Yes (Hospitalization, Disabling)
  Sender: FDA-Public Use
  Company Number: 2008RL000076

PATIENT
  Age: 69 Year
  Sex: Male
  Weight: 92.9874 kg

DRUGS (6)
  1. LOVAZA [Suspect]
     Indication: BLOOD TRIGLYCERIDES INCREASED
     Dosage: 1 GM; BID; PO
     Route: 048
     Dates: start: 20080130, end: 20080131
  2. ATENOLOL [Concomitant]
  3. GLYBURIDE [Concomitant]
  4. ASPIRIN [Concomitant]
  5. PLAVIX [Concomitant]
  6. VITAMINS /90003601/ [Concomitant]

REACTIONS (2)
  - ABNORMAL BEHAVIOUR [None]
  - EMBOLIC STROKE [None]
